FAERS Safety Report 4685180-5 (Version None)
Quarter: 2005Q2

REPORT INFORMATION
  Report Type: 
  Country: None (occurrence: None)
  Receive Date: 20050603
  Receipt Date: 20050519
  Transmission Date: 20051028
  Serious: Yes (Hospitalization)
  Sender: FDA-Public Use
  Company Number: 170432

PATIENT
  Age: 61 Year
  Sex: Male

DRUGS (4)
  1. AVONEX [Suspect]
     Indication: MULTIPLE SCLEROSIS
     Dosage: 30 UG; QW; IM
     Route: 030
     Dates: start: 19980501, end: 20030307
  2. LIORESAL [Concomitant]
  3. XATRAL [Concomitant]
  4. NEURONTIN [Concomitant]

REACTIONS (11)
  - CHEST PAIN [None]
  - CUTANEOUS SARCOIDOSIS [None]
  - GRANULOMA SKIN [None]
  - HEPATIC NEOPLASM [None]
  - HILAR LYMPHADENOPATHY [None]
  - LUNG NEOPLASM [None]
  - MEDIASTINAL DISORDER [None]
  - OBSTRUCTIVE AIRWAYS DISORDER [None]
  - PLEURAL FIBROSIS [None]
  - PULMONARY SARCOIDOSIS [None]
  - SKIN DISORDER [None]
